FAERS Safety Report 13514361 (Version 1)
Quarter: 2017Q2

REPORT INFORMATION
  Report Type: Spontaneous
  Country: DE (occurrence: DE)
  Receive Date: 20170504
  Receipt Date: 20170504
  Transmission Date: 20170830
  Serious: Yes (Hospitalization)
  Sender: FDA-Public Use
  Company Number: GXKR2017DE002475

PATIENT

DRUGS (6)
  1. CLOZAPINE. [Interacting]
     Active Substance: CLOZAPINE
     Indication: PRODUCT USED FOR UNKNOWN INDICATION
     Dosage: LONG-TERM MEDICATION, 450 MG/D
     Route: 065
     Dates: end: 20150928
  2. VALPROATE SODIUM. [Suspect]
     Active Substance: VALPROATE SODIUM
     Indication: PRODUCT USED FOR UNKNOWN INDICATION
     Dosage: LONG-TERM MEDICATION, 2000 MG/D
     Route: 065
  3. CLOZAPINE. [Interacting]
     Active Substance: CLOZAPINE
     Dosage: 425 MG, UNK
     Route: 065
     Dates: start: 20150929
  4. HALDOL [Interacting]
     Active Substance: HALOPERIDOL
     Indication: PRODUCT USED FOR UNKNOWN INDICATION
     Dosage: LONG-TERM MEDICATION, 3MG/D
     Route: 065
  5. DIPIPERON [Interacting]
     Active Substance: PIPAMPERONE
     Indication: PRODUCT USED FOR UNKNOWN INDICATION
     Dosage: LONG-TERM MEDICATION, 60 MG/D
     Route: 065
  6. PANTOPRAZOL ABZ PROTECT [Concomitant]
     Active Substance: PANTOPRAZOLE SODIUM
     Indication: PRODUCT USED FOR UNKNOWN INDICATION
     Dosage: LONG-TERM MEDICATION, 40 MG/D
     Route: 065

REACTIONS (2)
  - Pleurothotonus [Recovered/Resolved]
  - Parkinsonism [Recovered/Resolved]

NARRATIVE: CASE EVENT DATE: 20150929
